FAERS Safety Report 15951268 (Version 1)
Quarter: 2019Q1

REPORT INFORMATION
  Report Type: Spontaneous
  Country: NL (occurrence: NL)
  Receive Date: 20190212
  Receipt Date: 20190212
  Transmission Date: 20190417
  Serious: Yes (Death, Hospitalization)
  Sender: FDA-Public Use
  Company Number: NL-PFIZER INC-2019058490

PATIENT
  Age: 64 Year
  Sex: Female

DRUGS (3)
  1. CILASTATIN/IMIPENEM [Suspect]
     Active Substance: CILASTATIN SODIUM\IMIPENEM
     Indication: EVIDENCE BASED TREATMENT
     Dosage: UNK
     Dates: start: 2005
  2. CILASTATIN/IMIPENEM [Suspect]
     Active Substance: CILASTATIN SODIUM\IMIPENEM
     Indication: ANTIBIOTIC THERAPY
  3. INFLIXIMAB [Concomitant]
     Active Substance: INFLIXIMAB
     Indication: HAEMOCHROMATOSIS
     Dosage: 3 MG/KG, UNK (ANTI-TNIF-ALPHA, INFUSION)

REACTIONS (5)
  - Drug ineffective [Fatal]
  - Mucormycosis [None]
  - Sepsis [Fatal]
  - Somnolence [None]
  - Respiratory failure [None]
